FAERS Safety Report 25751349 (Version 2)
Quarter: 2025Q3

REPORT INFORMATION
  Report Type: Spontaneous
  Country: JP (occurrence: JP)
  Receive Date: 20250902
  Receipt Date: 20250915
  Transmission Date: 20251020
  Serious: Yes (Hospitalization)
  Sender: FERRING
  Company Number: JP-ferring-EVA202501352FERRINGPH

PATIENT

DRUGS (2)
  1. DEGARELIX [Suspect]
     Active Substance: DEGARELIX
     Indication: Product used for unknown indication
     Route: 065
     Dates: start: 2025, end: 2025
  2. DEGARELIX [Suspect]
     Active Substance: DEGARELIX
     Dosage: UNK, MONTHLY (MAINTANANCE DOSE)
     Route: 065

REACTIONS (2)
  - Pneumonia [Recovered/Resolved]
  - Product use issue [Unknown]

NARRATIVE: CASE EVENT DATE: 20250617
